FAERS Safety Report 15688497 (Version 1)
Quarter: 2018Q4

REPORT INFORMATION
  Report Type: Spontaneous
  Country: TN (occurrence: TN)
  Receive Date: 20181205
  Receipt Date: 20181205
  Transmission Date: 20190205
  Serious: Yes (Other)
  Sender: FDA-Public Use
  Company Number: TN-SUN PHARMACEUTICAL INDUSTRIES LTD-2018RR-192525

PATIENT
  Age: 13 Year

DRUGS (3)
  1. LEVOFLOXACIN. [Suspect]
     Active Substance: LEVOFLOXACIN
     Indication: PRODUCT USED FOR UNKNOWN INDICATION
     Dosage: 1/100 DILUTION
     Route: 023
  2. CIPROFLOXACIN. [Suspect]
     Active Substance: CIPROFLOXACIN
     Indication: PRODUCT USED FOR UNKNOWN INDICATION
     Dosage: 1/100 DILUTION
     Route: 023
  3. OFLOXACIN. [Suspect]
     Active Substance: OFLOXACIN
     Indication: ESCHERICHIA URINARY TRACT INFECTION
     Dosage: 200 MILLIGRAM, DAILY
     Route: 048

REACTIONS (3)
  - Anaphylactic shock [Recovered/Resolved]
  - Therapeutic product cross-reactivity [Unknown]
  - Pruritus [Unknown]
